FAERS Safety Report 5361313-2 (Version None)
Quarter: 2007Q2

REPORT INFORMATION
  Report Type: 
  Country: None (occurrence: None)
  Receive Date: 20070614
  Receipt Date: 20070604
  Transmission Date: 20071010
  Serious: Yes (Other)
  Sender: FDA-Public Use
  Company Number: 07H-153-0312686-00

PATIENT
  Age: 57 Year
  Sex: Female

DRUGS (10)
  1. VANCOMYCIN HYDROCHLORIDE [Suspect]
     Indication: BACTERIAL INFECTION
     Dosage: SEE IMAGE
     Route: 042
     Dates: start: 20060401
  2. VANCOMYCIN HYDROCHLORIDE [Suspect]
     Indication: OSTEOMYELITIS
     Dosage: SEE IMAGE
     Route: 042
     Dates: start: 20060401
  3. VANCOMYCIN HYDROCHLORIDE [Suspect]
     Indication: WOUND INFECTION
     Dosage: SEE IMAGE
     Route: 042
     Dates: start: 20060401
  4. ACETAMINOPHEN [Concomitant]
  5. THIAMINE (THIAMINE) [Concomitant]
  6. ZOLPIDEM TARTRATE [Concomitant]
  7. MAGNESIUM OXIDE (MAGNESIUM OXIDE) [Concomitant]
  8. MECOBALAMIN (MECOBALAMIN) [Concomitant]
  9. NICAMETATE (NICAMETATE) [Concomitant]
  10. TRAMADOL HCL [Concomitant]

REACTIONS (3)
  - ADVERSE DRUG REACTION [None]
  - AGRANULOCYTOSIS [None]
  - NEUTROPENIA [None]
